FAERS Safety Report 11196610 (Version 2)
Quarter: 2015Q3

REPORT INFORMATION
  Report Type: Spontaneous
  Country: GB (occurrence: GB)
  Receive Date: 20150617
  Receipt Date: 20150722
  Transmission Date: 20151125
  Serious: Yes (Other)
  Sender: FDA-Public Use
  Company Number: GB-ASTELLAS-2015EU006864

PATIENT
  Age: 72 Year
  Sex: Female

DRUGS (3)
  1. AMLODIPINE [Concomitant]
     Active Substance: AMLODIPINE BESYLATE
     Indication: HYPERTENSION
     Route: 065
  2. AMLODIPINE [Concomitant]
     Active Substance: AMLODIPINE BESYLATE
     Route: 048
     Dates: start: 20101104
  3. VESICARE [Suspect]
     Active Substance: SOLIFENACIN SUCCINATE
     Indication: PRODUCT USED FOR UNKNOWN INDICATION
     Route: 048
     Dates: start: 20020322, end: 20150609

REACTIONS (7)
  - Oedema peripheral [Unknown]
  - Weight decreased [Unknown]
  - Hiatus hernia [Unknown]
  - Vomiting [Unknown]
  - Dysphagia [Recovering/Resolving]
  - Oesophageal stenosis [Unknown]
  - Dry throat [Recovering/Resolving]

NARRATIVE: CASE EVENT DATE: 20150415
